FAERS Safety Report 18807407 (Version 1)
Quarter: 2021Q1

REPORT INFORMATION
  Report Type: Spontaneous
  Country: US (occurrence: US)
  Receive Date: 20210128
  Receipt Date: 20210128
  Transmission Date: 20210419
  Serious: Yes (Other)
  Sender: FDA-Public Use
  Company Number: None

PATIENT
  Age: 49 Year
  Sex: Male

DRUGS (2)
  1. DEFERASIROX TAB FOR ORAL SUSP 500MG ACTAVIS [Suspect]
     Active Substance: DEFERASIROX
     Indication: SICKLE CELL DISEASE
     Route: 048
     Dates: start: 20200820
  2. DEFERASIROX. [Concomitant]
     Active Substance: DEFERASIROX

REACTIONS (1)
  - Venoocclusive disease [None]

NARRATIVE: CASE EVENT DATE: 202012
